FAERS Safety Report 7642230-1 (Version None)
Quarter: 2011Q3

REPORT INFORMATION
  Report Type: 
  Country: None (occurrence: None)
  Receive Date: 20110728
  Receipt Date: 20110715
  Transmission Date: 20111222
  Serious: Yes (Other)
  Sender: FDA-Public Use
  Company Number: PHFR2011GB04287

PATIENT
  Sex: Male

DRUGS (1)
  1. TEGRETOL [Suspect]
     Dosage: UNK UKN, UNK
     Route: 065

REACTIONS (1)
  - AMNESIA [None]
